FAERS Safety Report 9820549 (Version 1)
Quarter: 2013Q4

REPORT INFORMATION
  Report Type: Spontaneous
  Country: US (occurrence: None)
  Receive Date: 20131028
  Receipt Date: 20131028
  Transmission Date: 20140711
  Serious: No
  Sender: FDA-Public Use
  Company Number: 2013US001833

PATIENT
  Age: 52 Year
  Sex: Male
  Weight: 112 kg

DRUGS (1)
  1. ICLUSIG [Suspect]
     Indication: CHRONIC MYELOID LEUKAEMIA
     Route: 048
     Dates: start: 20130530, end: 2013

REACTIONS (5)
  - Renal disorder [None]
  - Dyspnoea [None]
  - Abdominal pain upper [None]
  - Back pain [None]
  - Headache [None]
